FAERS Safety Report 4305482-1 (Version None)
Quarter: 2004Q1

REPORT INFORMATION
  Report Type: 
  Country: None (occurrence: None)
  Receive Date: 20040226
  Receipt Date: 20030924
  Transmission Date: 20041129
  Serious: No
  Sender: FDA-Public Use
  Company Number: US-BRISTOL-MYERS SQUIBB COMPANY-12393070

PATIENT
  Age: 69 Year
  Sex: Male

DRUGS (5)
  1. ABILIFY [Suspect]
     Dosage: DOSAGE: 15MG BID
     Route: 048
     Dates: start: 20030215
  2. ARICEPT [Concomitant]
     Dosage: TAKEN AT 6:00 P.M.
  3. ATIVAN [Concomitant]
     Dosage: TAKEN AT NOON, 4:00 P.M. AND HOUR OF SLEEP
  4. ZOLOFT [Concomitant]
  5. SINEMET [Concomitant]
     Dosage: DOSAGE: 50MG/200MG ONE TABLET EVERY 8 HOURS

REACTIONS (1)
  - ANAEMIA [None]
